FAERS Safety Report 22161235 (Version 1)
Quarter: 2023Q1

REPORT INFORMATION
  Report Type: Spontaneous
  Country: RU (occurrence: None)
  Receive Date: 20230331
  Receipt Date: 20230331
  Transmission Date: 20230417
  Serious: Yes (Other)
  Sender: FDA-Public Use
  Company Number: RU-ROCHE-3315936

PATIENT

DRUGS (1)
  1. OCREVUS [Suspect]
     Active Substance: OCRELIZUMAB
     Indication: Multiple sclerosis
     Route: 065
     Dates: start: 202109

REACTIONS (5)
  - Bone infarction [Unknown]
  - Arthralgia [Unknown]
  - Synovitis [Unknown]
  - Bursitis [Unknown]
  - Plica syndrome [Unknown]
